FAERS Safety Report 10154102 (Version 1)
Quarter: 2014Q2

REPORT INFORMATION
  Report Type: Spontaneous
  Country: US (occurrence: None)
  Receive Date: 20140505
  Receipt Date: 20140505
  Transmission Date: 20141212
  Serious: No
  Sender: FDA-Public Use
  Company Number: None

PATIENT
  Age: 37 Year
  Sex: Male
  Weight: 142 kg

DRUGS (1)
  1. LARYNG-O-JET [Suspect]
     Indication: SURGERY
     Dates: start: 20140411, end: 20140411

REACTIONS (1)
  - Foreign body [None]
